FAERS Safety Report 4640382-9 (Version None)
Quarter: 2005Q2

REPORT INFORMATION
  Report Type: 
  Country: None (occurrence: None)
  Receive Date: 20050420
  Receipt Date: 20050324
  Transmission Date: 20051028
  Serious: Yes (Other)
  Sender: FDA-Public Use
  Company Number: GB-GLAXOSMITHKLINE-B0377545A

PATIENT
  Age: 30 Year
  Sex: Female

DRUGS (3)
  1. NIQUITIN CQ 21MG [Suspect]
     Indication: SMOKING CESSATION THERAPY
     Dosage: 21MG PER DAY
     Route: 062
     Dates: start: 20050319
  2. VENTOLIN HFA [Concomitant]
     Indication: ASTHMA
  3. BECLOMETHASONE DIPROPIONATE [Concomitant]
     Indication: ASTHMA

REACTIONS (4)
  - ASTHMA [None]
  - CHEST DISCOMFORT [None]
  - DYSPNOEA [None]
  - WHEEZING [None]
